FAERS Safety Report 16851817 (Version 1)
Quarter: 2019Q3

REPORT INFORMATION
  Report Type: Report from Study
  Country: US (occurrence: US)
  Receive Date: 20190925
  Receipt Date: 20190925
  Transmission Date: 20191005
  Serious: Yes (Hospitalization)
  Sender: FDA-Public Use
  Company Number: US-EISAI MEDICAL RESEARCH-EC-2019-062608

PATIENT
  Age: 57 Year
  Sex: Male
  Weight: 68.94 kg

DRUGS (8)
  1. MIRTAZAPINE. [Concomitant]
     Active Substance: MIRTAZAPINE
  2. PRINIVIL [Concomitant]
     Active Substance: LISINOPRIL
  3. NORVASC [Concomitant]
     Active Substance: AMLODIPINE BESYLATE
  4. MUCINEX [Concomitant]
     Active Substance: GUAIFENESIN
  5. MULTIVITAMINS [Concomitant]
     Active Substance: VITAMINS
  6. LENVIMA [Suspect]
     Active Substance: LENVATINIB
     Indication: HEPATIC CANCER
     Route: 048
     Dates: start: 20190909, end: 201909
  7. ADVIL [Concomitant]
     Active Substance: IBUPROFEN
  8. LIPITOR [Concomitant]
     Active Substance: ATORVASTATIN CALCIUM

REACTIONS (1)
  - Arthralgia [Unknown]

NARRATIVE: CASE EVENT DATE: 20190912
